FAERS Safety Report 4562884-6 (Version None)
Quarter: 2005Q1

REPORT INFORMATION
  Report Type: 
  Country: None (occurrence: None)
  Receive Date: 20050121
  Receipt Date: 20050106
  Transmission Date: 20050727
  Serious: Yes (Life-Threatening, Hospitalization, Disabling)
  Sender: FDA-Public Use
  Company Number: IN-2004-036601

PATIENT
  Age: 29 Year
  Sex: Female
  Weight: 57 kg

DRUGS (1)
  1. ULTRAVIST 300 [Suspect]
     Indication: COMPUTERISED TOMOGRAM
     Dosage: 20 ML 1 DOSE INTRAVENOUS
     Route: 042
     Dates: start: 20041112, end: 20041112

REACTIONS (3)
  - ANAPHYLACTIC SHOCK [None]
  - MONOPLEGIA [None]
  - RESPIRATORY ARREST [None]
